FAERS Safety Report 9760671 (Version 1)
Quarter: 2013Q4

REPORT INFORMATION
  Report Type: Spontaneous
  Country: US (occurrence: US)
  Receive Date: 20131216
  Receipt Date: 20131216
  Transmission Date: 20140711
  Serious: No
  Sender: FDA-Public Use
  Company Number: US-BIOGENIDEC-2013BI100009

PATIENT
  Age: 28 Year
  Sex: Female
  Weight: 55 kg

DRUGS (12)
  1. TECFIDERA [Suspect]
     Indication: PRODUCT USED FOR UNKNOWN INDICATION
     Route: 048
  2. TECFIDERA [Suspect]
     Indication: PRODUCT USED FOR UNKNOWN INDICATION
  3. TECFIDERA [Suspect]
     Indication: PRODUCT USED FOR UNKNOWN INDICATION
  4. ADVAIR HFA AER 45/21 [Concomitant]
  5. ALBUTEROL NEB 0.5% [Concomitant]
  6. ORTHO TRI-TAB CYCLN LO [Concomitant]
  7. VITAMIN D [Concomitant]
  8. VITAMIN B 12 LOZ [Concomitant]
  9. METOPROLOL ER [Concomitant]
  10. LISINOPRIL [Concomitant]
  11. AMANTADINE [Concomitant]
  12. CARAFATE [Concomitant]
     Indication: PREMEDICATION

REACTIONS (3)
  - Prescribed underdose [Unknown]
  - Nausea [Unknown]
  - Abdominal pain upper [Recovered/Resolved]
